FAERS Safety Report 8492503-8 (Version None)
Quarter: 2012Q3

REPORT INFORMATION
  Report Type: 
  Country: None (occurrence: None)
  Receive Date: 20120706
  Receipt Date: 20120628
  Transmission Date: 20120928
  Serious: Yes (Other)
  Sender: FDA-Public Use
  Company Number: US-PFIZER INC-2012036707

PATIENT
  Sex: Male

DRUGS (3)
  1. XYNTHA [Suspect]
     Indication: FACTOR VIII INHIBITION
  2. XYNTHA [Suspect]
     Indication: PROPHYLAXIS
  3. XYNTHA [Suspect]
     Indication: HAEMOPHILIA
     Dosage: 300 IU, 2X/WEEK
     Route: 042
     Dates: start: 20120101, end: 20120206

REACTIONS (2)
  - HAEMORRHAGE [None]
  - FACTOR VIII INHIBITION [None]
